FAERS Safety Report 15412899 (Version 1)
Quarter: 2018Q3

REPORT INFORMATION
  Report Type: Spontaneous
  Country: FR (occurrence: FR)
  Receive Date: 20180921
  Receipt Date: 20180921
  Transmission Date: 20181010
  Serious: Yes (Death, Hospitalization)
  Sender: FDA-Public Use
  Company Number: FR-PFIZER INC-2018377676

PATIENT
  Age: 48 Year
  Sex: Male

DRUGS (5)
  1. FLAGYL [METRONIDAZOLE] [Concomitant]
     Indication: SEPSIS
     Dosage: UNK
  2. LEVETIRACETAM. [Suspect]
     Active Substance: LEVETIRACETAM
     Indication: EPILEPSY
     Dosage: 500 MG, 1X/DAY
     Route: 048
     Dates: start: 20120725, end: 20120727
  3. DOLIPRANE [Suspect]
     Active Substance: ACETAMINOPHEN
     Indication: PAIN
     Dosage: 1 G, UNK
     Route: 048
     Dates: end: 20120727
  4. GEMCITABINE HYDROCHLORIDE. [Suspect]
     Active Substance: GEMCITABINE HYDROCHLORIDE
     Indication: LUNG ADENOCARCINOMA
     Dosage: 1250 MG/M2, SINGLE
     Route: 042
     Dates: start: 20120722, end: 20120722
  5. ROCEPHINE [Concomitant]
     Active Substance: CEFTRIAXONE SODIUM
     Indication: SEPSIS
     Dosage: UNK

REACTIONS (2)
  - Death [Fatal]
  - Hepatocellular injury [Unknown]

NARRATIVE: CASE EVENT DATE: 20120727
